FAERS Safety Report 13682800 (Version 1)
Quarter: 2017Q2

REPORT INFORMATION
  Report Type: Spontaneous
  Country: US (occurrence: US)
  Receive Date: 20170623
  Receipt Date: 20170623
  Transmission Date: 20170830
  Serious: No
  Sender: FDA-Public Use
  Company Number: US-MALLINCKRODT-T201700144

PATIENT
  Sex: Male

DRUGS (7)
  1. HYDRALAZINE [Concomitant]
     Active Substance: HYDRALAZINE HYDROCHLORIDE
     Dosage: TAB 50 MG
  2. TAMSULOSIN [Concomitant]
     Active Substance: TAMSULOSIN
     Dosage: CAP 0.4 MG
  3. FUROSEMIDE. [Concomitant]
     Active Substance: FUROSEMIDE
     Dosage: TAB 20 MG
  4. OMEPRAZOLE. [Concomitant]
     Active Substance: OMEPRAZOLE
     Dosage: CAP 40 MG
  5. CARVEDILOL. [Concomitant]
     Active Substance: CARVEDILOL
     Dosage: TAB 12.5 MG
  6. COLCHICINE. [Concomitant]
     Active Substance: COLCHICINE
     Dosage: CAP 0.6 MG
  7. H.P. ACTHAR [Suspect]
     Active Substance: CORTICOTROPIN
     Indication: MONOCLONAL GAMMOPATHY
     Dosage: 80 UNITS
     Route: 065

REACTIONS (3)
  - Dizziness [Unknown]
  - Dehydration [Unknown]
  - Oedema [Unknown]
